FAERS Safety Report 6816324-4 (Version None)
Quarter: 2010Q3

REPORT INFORMATION
  Report Type: 
  Country: None (occurrence: None)
  Receive Date: 20100705
  Receipt Date: 20100621
  Transmission Date: 20110219
  Serious: Yes (Other)
  Sender: FDA-Public Use
  Company Number: PHHY2010CA41188

PATIENT
  Sex: Female

DRUGS (2)
  1. ACLASTA [Suspect]
     Dosage: 5MG/100ML, ONCE A YEAR
     Route: 042
     Dates: start: 20080401
  2. ACLASTA [Suspect]
     Dosage: 5MG/100ML, ONCE A YEAR
     Route: 042
     Dates: start: 20090717

REACTIONS (5)
  - HEADACHE [None]
  - HERPES ZOSTER [None]
  - SKIN LESION [None]
  - VERTIGO LABYRINTHINE [None]
  - VIRAL LABYRINTHITIS [None]
